FAERS Safety Report 7460169-1 (Version None)
Quarter: 2011Q2

REPORT INFORMATION
  Report Type: 
  Country: None (occurrence: None)
  Receive Date: 20110427
  Receipt Date: 20110414
  Transmission Date: 20111010
  Serious: Yes (Death, Life-Threatening, Hospitalization)
  Sender: FDA-Public Use
  Company Number: 2009BI007177

PATIENT
  Sex: Male

DRUGS (25)
  1. METHYLPREDNISOLONE [Concomitant]
  2. SULFAMETHOXAZOLE [Concomitant]
  3. ACINON [Concomitant]
  4. MS CONTIN [Concomitant]
  5. ITRIZOLE [Concomitant]
  6. CYCLOPHOSPHAMIDE [Concomitant]
  7. DEXAMETHASONE [Concomitant]
  8. ANTIPYRETICS [Concomitant]
  9. VINCRISTINE [Concomitant]
  10. ANTIHISTAMINES [Concomitant]
  11. FOY (GABEXATE MESILATE) INJECTION [Concomitant]
  12. CLADRIBINE [Concomitant]
  13. CYTARABINE [Concomitant]
  14. FLUDARABINE PHOSPHATE [Concomitant]
  15. RITUXIMAB [Concomitant]
  16. MOITOXANITRONE [Concomitant]
  17. CISPLATIN [Concomitant]
  18. ZEVALIN [Suspect]
     Indication: LYMPHOMA
     Dosage: 944 MBQ; 1X;IV
     Route: 042
     Dates: start: 20090210, end: 20090217
  19. ZEVALIN [Suspect]
     Indication: FOLLICLE CENTRE LYMPHOMA, FOLLICULAR GRADE I, II, III STAGE IV
     Dosage: 944 MBQ; 1X;IV
     Route: 042
     Dates: start: 20090210, end: 20090217
  20. IMMUNE GLOBULIN INTRAVENOUS (HUMAN) [Concomitant]
  21. PREDNISOLONE [Concomitant]
  22. RITUXAN [Suspect]
     Dosage: 250 MG/M2; 1X IV DRIP
     Route: 041
     Dates: start: 20090210, end: 20090217
  23. OTHER ANALGESICS AND [Concomitant]
  24. ETOPOSIDE [Concomitant]
  25. DOXORUBICIN HCL [Concomitant]

REACTIONS (21)
  - EMBOLISM [None]
  - CARDIAC FAILURE [None]
  - ANAEMIA [None]
  - CARDIAC HYPERTROPHY [None]
  - CHOLESTASIS [None]
  - BRAIN OEDEMA [None]
  - INTERSTITIAL LUNG DISEASE [None]
  - PULMONARY FIBROSIS [None]
  - MYOCARDIAL INFARCTION [None]
  - JAUNDICE [None]
  - PYREXIA [None]
  - ACUTE RESPIRATORY DISTRESS SYNDROME [None]
  - PLEURAL EFFUSION [None]
  - RENAL ATROPHY [None]
  - RENAL HYPERTROPHY [None]
  - APPARENT LIFE THREATENING EVENT [None]
  - CEREBRAL INFARCTION [None]
  - RENAL INFARCT [None]
  - PLATELET COUNT DECREASED [None]
  - DIABETES INSIPIDUS [None]
  - CEREBRAL ARTERY EMBOLISM [None]
